FAERS Safety Report 20064067 (Version 1)
Quarter: 2021Q4

REPORT INFORMATION
  Report Type: Spontaneous
  Country: US (occurrence: None)
  Receive Date: 20211111
  Receipt Date: 20211111
  Transmission Date: 20220303
  Serious: Yes (Hospitalization)
  Sender: FDA-Public Use
  Company Number: None

PATIENT
  Age: 42 Year
  Sex: Female

DRUGS (1)
  1. ADEMPAS [Suspect]
     Active Substance: RIOCIGUAT
     Dosage: 2.5 MG TID ORAL
     Route: 048
     Dates: start: 20211121

REACTIONS (6)
  - Fatigue [None]
  - Dyspnoea exertional [None]
  - Cough [None]
  - Pyrexia [None]
  - Hypervolaemia [None]
  - Pericardial effusion [None]

NARRATIVE: CASE EVENT DATE: 20211102
